FAERS Safety Report 9747892 (Version 1)
Quarter: 2013Q4

REPORT INFORMATION
  Report Type: Spontaneous
  Country: GB (occurrence: None)
  Receive Date: 20131206
  Receipt Date: 20131206
  Transmission Date: 20140711
  Serious: Yes (Life-Threatening, Hospitalization, Other)
  Sender: FDA-Public Use
  Company Number: FK201305194

PATIENT
  Age: 53 Year
  Sex: Female
  Weight: 55.7 kg

DRUGS (6)
  1. IRINOTECAN (IRINOTECAN) [Suspect]
     Indication: COLORECTAL CANCER METASTATIC
     Dosage: 290 MG, 1 IN 2 WK, INTRAVENOUS
     Route: 042
     Dates: start: 20130516
  2. FLUOROURACIL (FLUOROURACIL) [Suspect]
     Indication: COLORECTAL CANCER METASTATIC
     Dosage: 625 MG, 1 IN 2 WK, INTRAVENOUS
     Dates: start: 20130516
  3. AVASTIN (BEVACIZUMAB) [Suspect]
     Indication: COLORECTAL CANCER METASTATIC
     Dosage: 275 MG, 1 IN 2 WK, INTRAVENOUS
     Dates: start: 20130516
  4. CITALOPRAM [Concomitant]
  5. DIAZEPAM [Concomitant]
  6. ZOPICLONE [Concomitant]

REACTIONS (4)
  - Suicide attempt [None]
  - Cervical vertebral fracture [None]
  - Hallucination [None]
  - Malaise [None]
